FAERS Safety Report 18620545 (Version 5)
Quarter: 2021Q2

REPORT INFORMATION
  Report Type: Report from Study
  Country: GB (occurrence: GB)
  Receive Date: 20201216
  Receipt Date: 20210517
  Transmission Date: 20210717
  Serious: Yes (Other)
  Sender: FDA-Public Use
  Company Number: GB-JNJFOC-20201226035

PATIENT
  Age: 47 Year
  Sex: Female

DRUGS (31)
  1. FEXOFENADINE [Concomitant]
     Active Substance: FEXOFENADINE HYDROCHLORIDE
     Dates: start: 20210202
  2. HYDROXYZINE [Concomitant]
     Active Substance: HYDROXYZINE HYDROCHLORIDE
     Dates: start: 20210202
  3. CARBOCISTEINE [Concomitant]
     Active Substance: CARBOCYSTEINE
     Dosage: 168 CAPSULES
     Dates: start: 20210202
  4. AVAMYS [Concomitant]
     Active Substance: FLUTICASONE FUROATE
     Route: 045
     Dates: start: 20210202
  5. SALBUTAMOL [Concomitant]
     Active Substance: ALBUTEROL
     Dosage: 200 DOSE
     Dates: start: 20210202
  6. PREDNISOLONE. [Concomitant]
     Active Substance: PREDNISOLONE
     Dosage: 42 TABLETS
     Dates: start: 20210111
  7. PROCHLORPERAZINE. [Concomitant]
     Active Substance: PROCHLORPERAZINE
     Indication: DIZZINESS
     Dosage: 14 TABLETS
  8. HYPROMELLOSE [Concomitant]
     Active Substance: HYPROMELLOSES
     Dates: start: 20210202
  9. TRELEGY ELLIPTA [Concomitant]
     Active Substance: FLUTICASONE FUROATE\UMECLIDINIUM BROMIDE\VILANTEROL TRIFENATATE
     Dates: start: 20210202
  10. MATRIFEN [Concomitant]
     Active Substance: FENTANYL
     Dosage: 12 MICRONES
     Dates: start: 20210202
  11. STELARA [Suspect]
     Active Substance: USTEKINUMAB
     Route: 058
     Dates: start: 20200626
  12. METRONIDAZOLE. [Suspect]
     Active Substance: METRONIDAZOLE
     Indication: PRODUCT USED FOR UNKNOWN INDICATION
     Route: 065
  13. NAPROXEN. [Concomitant]
     Active Substance: NAPROXEN
     Dosage: 56 TABLETS
     Dates: start: 20210205
  14. EXOREX [Concomitant]
     Active Substance: COAL TAR
     Indication: PRURITUS
     Route: 065
     Dates: start: 20210111
  15. OXYBUTYNIN. [Concomitant]
     Active Substance: OXYBUTYNIN CHLORIDE
     Dosage: 56 TABLETS
     Dates: start: 20210202
  16. SUNSENSE AFTERSUN [Concomitant]
     Dates: start: 20210202
  17. AZITHROMYCIN ANHYDROUS. [Concomitant]
     Active Substance: AZITHROMYCIN ANHYDROUS
     Dosage: 12 TABLETS
     Dates: start: 20210202
  18. COLOFAC [MEBEVERINE HYDROCHLORIDE] [Concomitant]
     Indication: ABDOMINAL DISTENSION
     Dosage: 84 TABLETS
     Dates: start: 20191220
  19. HYDROMOL [ISOPROPYL MYRISTATE;PARAFFIN, LIQUID] [Concomitant]
     Active Substance: ISOPROPYL MYRISTATE\PARAFFIN
  20. COLECALCIFEROL [Concomitant]
     Active Substance: CHOLECALCIFEROL
     Dosage: 200 CAPSULES
     Dates: start: 20201022
  21. PREGABALIN. [Concomitant]
     Active Substance: PREGABALIN
     Dosage: 56 CAPSULES
     Route: 065
     Dates: start: 20210125
  22. PARACETAMOL [Concomitant]
     Active Substance: ACETAMINOPHEN
     Dosage: 100 TABLETS
     Dates: start: 20210205
  23. CALCIPOTRIOL [Concomitant]
     Active Substance: CALCIPOTRIENE
     Dates: start: 20210202
  24. XAMIOL [BETAMETHASONE DIPROPIONATE;CALCIPOTRIOL MONOHYDRATE] [Concomitant]
     Indication: PSORIASIS
     Dates: start: 20210111
  25. PROMETHAZINE HYDROCHLORIDE. [Concomitant]
     Active Substance: PROMETHAZINE HYDROCHLORIDE
     Dates: start: 20210202
  26. OMEPRAZOLE. [Concomitant]
     Active Substance: OMEPRAZOLE
     Dosage: 28 CAPSULES
     Dates: start: 20210202
  27. CITALOPRAM [Concomitant]
     Active Substance: CITALOPRAM HYDROBROMIDE
     Dates: start: 20210202
  28. TOPIRAMATE. [Concomitant]
     Active Substance: TOPIRAMATE
     Dosage: 60 TABLETS
     Dates: start: 20210202
  29. STELARA [Suspect]
     Active Substance: USTEKINUMAB
     Indication: PSORIASIS
     Route: 058
     Dates: start: 20171008
  30. FERROUS FUMARATE [Concomitant]
     Active Substance: FERROUS FUMARATE
     Dates: start: 20210202
  31. CHLORPHENIRAMINE [CHLORPHENAMINE] [Concomitant]
     Active Substance: CHLORPHENIRAMINE
     Dosage: 56 TABLETS
     Dates: start: 20210202

REACTIONS (17)
  - Diverticulitis [Unknown]
  - Tinnitus [Unknown]
  - Anaphylactic reaction [Unknown]
  - Tendonitis [Unknown]
  - Rotator cuff syndrome [Unknown]
  - Migraine [Unknown]
  - Uterine leiomyoma [Unknown]
  - Diverticulum intestinal [Unknown]
  - Hypersensitivity [Unknown]
  - Psoriasis [Unknown]
  - Polyp [Recovered/Resolved]
  - Lower respiratory tract infection [Unknown]
  - Suspected COVID-19 [Unknown]
  - Bronchiectasis [Unknown]
  - Bursitis [Unknown]
  - Hyperthyroidism [Unknown]
  - Presbyacusis [Unknown]

NARRATIVE: CASE EVENT DATE: 20171113
